FAERS Safety Report 8235367-X (Version None)
Quarter: 2012Q1

REPORT INFORMATION
  Report Type: 
  Country: None (occurrence: None)
  Receive Date: 20120322
  Receipt Date: 20120313
  Transmission Date: 20120608
  Serious: Yes (Hospitalization, Disabling)
  Sender: FDA-Public Use
  Company Number: 2011SP037378

PATIENT
  Age: 39 Year
  Sex: Female
  Weight: 132.0875 kg

DRUGS (5)
  1. MOBIC [Concomitant]
  2. NUVARING [Suspect]
     Indication: CONTRACEPTION
     Dates: start: 20090401, end: 20090801
  3. NUVARING [Suspect]
     Indication: POLYMENORRHOEA
     Dates: start: 20090401, end: 20090801
  4. NUVARING [Suspect]
     Indication: MENORRHAGIA
     Dates: start: 20090401, end: 20090801
  5. NUVARING [Suspect]
     Indication: MENSTRUATION IRREGULAR
     Dates: start: 20090401, end: 20090801

REACTIONS (9)
  - PULMONARY OEDEMA [None]
  - PULMONARY EMBOLISM [None]
  - CHEST PAIN [None]
  - DYSPNOEA EXERTIONAL [None]
  - OSTEOARTHRITIS [None]
  - PRODUCTIVE COUGH [None]
  - DIZZINESS [None]
  - BRONCHITIS [None]
  - HYPERHIDROSIS [None]
